FAERS Safety Report 8710221 (Version 4)
Quarter: 2012Q4

REPORT INFORMATION
  Report Type: 
  Country: FI (occurrence: FI)
  Receive Date: 20120807
  Receipt Date: 20121112
  Transmission Date: 20130627
  Serious: Yes (Hospitalization, Other)
  Sender: FDA-Public Use
  Company Number: FI-AMGEN-FINSP2012047655

PATIENT
  Age: 29 Year
  Sex: Female

DRUGS (4)
  1. ENBREL [Suspect]
     Indication: ANKYLOSING SPONDYLITIS
     Dosage: 50 mg, weekly
     Route: 058
     Dates: start: 20120426, end: 20120523
  2. HUMIRA [Suspect]
     Indication: ANKYLOSING SPONDYLITIS
     Dosage: 40 mg once in 2 weeks
     Route: 058
     Dates: start: 20120308, end: 20120403
  3. SALAZOPYRIN EN [Concomitant]
     Indication: ANKYLOSING SPONDYLITIS
     Dosage: 500 mg, 2 tablets 2x/day
     Route: 048
  4. MOBIC [Concomitant]
     Indication: ANKYLOSING SPONDYLITIS
     Dosage: 15 mg, as needed 1x/day
     Route: 048

REACTIONS (6)
  - Dizziness [Recovered/Resolved]
  - Diplopia [Recovered/Resolved]
  - Balance disorder [Recovered/Resolved]
  - Hypoaesthesia [Unknown]
  - CSF oligoclonal band present [Unknown]
  - Demyelination [Unknown]
